FAERS Safety Report 9836628 (Version 7)
Quarter: 2017Q1

REPORT INFORMATION
  Report Type: Spontaneous
  Country: GB (occurrence: GB)
  Receive Date: 20140123
  Receipt Date: 20170228
  Transmission Date: 20170429
  Serious: Yes (Hospitalization)
  Sender: FDA-Public Use
  Company Number: GB-MERCK-1401GBR005941

PATIENT
  Age: 55 Year
  Sex: Female
  Weight: 56 kg

DRUGS (17)
  1. DEXAMETHASONE. [Suspect]
     Active Substance: DEXAMETHASONE
     Indication: BREAST CANCER METASTATIC
     Dosage: 4 MG (4 MG, 1 IN 1 D)
     Route: 065
     Dates: start: 20130711, end: 20130719
  2. EXEMESTANE. [Suspect]
     Active Substance: EXEMESTANE
     Indication: PRODUCT USED FOR UNKNOWN INDICATION
     Dosage: 25 MG (25 MG, 1 IN 1 D)
     Route: 048
     Dates: start: 201203
  3. CYCLIZINE [Concomitant]
     Active Substance: CYCLIZINE
     Indication: ANTIEMETIC SUPPORTIVE CARE
     Dosage: 150 MG (50 MG, 3 IN 1 D)
     Route: 048
     Dates: start: 20130313
  4. FENTANYL. [Concomitant]
     Active Substance: FENTANYL
     Indication: ANALGESIC THERAPY
     Dosage: 37 UG/HR, TID (37 DOSAGE FORMS, 3 IN 1 D)
     Route: 065
     Dates: start: 20130723
  5. VOLTAROL [Concomitant]
     Active Substance: DICLOFENAC SODIUM
     Indication: ANALGESIC THERAPY
     Dosage: 150 MG (50 MG, 3 IN 1 D)
     Route: 048
  6. OMEPRAZOLE. [Concomitant]
     Active Substance: OMEPRAZOLE
     Indication: PROPHYLAXIS
     Dosage: 20 MG (20 MG, 2 IN 1 D)
     Route: 042
     Dates: start: 20130719
  7. ORAMORPH [Concomitant]
     Active Substance: MORPHINE SULFATE
     Indication: ANALGESIC THERAPY
     Dosage: AS NECESSARY; PATIENT ROUTE OF ADMINISTRATION: I.C.
     Dates: start: 20130313
  8. PREGABALIN. [Concomitant]
     Active Substance: PREGABALIN
     Dosage: 50 MG (25 MG, 2 IN 1 D)
     Route: 048
     Dates: start: 20130717
  9. ZOPICLONE [Concomitant]
     Active Substance: ZOPICLONE
     Indication: INSOMNIA
     Dosage: 2-3 AT NIGHT (3.75 MG)
     Route: 048
     Dates: start: 20130408
  10. FENTANYL. [Concomitant]
     Active Substance: FENTANYL
     Dosage: 25 UG/HR, TID (25 DOSAGE FORMS, 3 IN 1 D)
     Route: 065
     Dates: start: 20130607
  11. ACETAMINOPHEN. [Concomitant]
     Active Substance: ACETAMINOPHEN
     Indication: ANALGESIC THERAPY
     Dosage: 50 MG (50 MG, 1 IN 1 D)
     Route: 048
     Dates: start: 20130513
  12. ACETAMINOPHEN. [Concomitant]
     Active Substance: ACETAMINOPHEN
     Dosage: 1 GM (1 GM, 1 IN 1 D)
     Route: 048
     Dates: start: 20130719
  13. PREGABALIN. [Concomitant]
     Active Substance: PREGABALIN
     Indication: NEURALGIA
     Dosage: 75 MG (75 MG,1 IN 1 D)
     Route: 048
     Dates: start: 20130719
  14. EXEMESTANE. [Suspect]
     Active Substance: EXEMESTANE
     Indication: BREAST CANCER METASTATIC
     Dosage: 25 MG (25 MG, 1 IN 1 D)
     Route: 048
     Dates: start: 20130307, end: 20130710
  15. AFINITOR [Suspect]
     Active Substance: EVEROLIMUS
     Indication: BREAST CANCER METASTATIC
     Dosage: 10 MG (10 MG, 1 IN 1 D)
     Route: 048
     Dates: start: 20130307, end: 20130710
  16. DICLOFENAC [Suspect]
     Active Substance: DICLOFENAC
     Indication: PRODUCT USED FOR UNKNOWN INDICATION
     Dosage: 150 MG (50 MG, 3 IN 1 D)
     Route: 065
     Dates: start: 20130711, end: 20130719
  17. OMEPRAZOLE. [Concomitant]
     Active Substance: OMEPRAZOLE
     Dosage: 10 MG (10 MG, 1 IN 1 D)
     Route: 048
     Dates: start: 20130605

REACTIONS (2)
  - Colitis [Recovered/Resolved]
  - Gastric ulcer [Recovered/Resolved]

NARRATIVE: CASE EVENT DATE: 20130718
